FAERS Safety Report 4409916-3 (Version None)
Quarter: 2004Q3

REPORT INFORMATION
  Report Type: 
  Country: None (occurrence: None)
  Receive Date: 20040728
  Receipt Date: 20040109
  Transmission Date: 20050211
  Serious: Yes (Hospitalization)
  Sender: FDA-Public Use
  Company Number: JP-GLAXOSMITHKLINE-B0319547A

PATIENT
  Age: 73 Year
  Sex: Female

DRUGS (2)
  1. VALTREX [Suspect]
     Indication: HERPES ZOSTER
     Dosage: 1000MG THREE TIMES PER DAY
     Route: 048
     Dates: start: 20031107, end: 20031114
  2. NO CONCURRENT MEDICATION [Concomitant]

REACTIONS (5)
  - CONJUNCTIVAL HYPERAEMIA [None]
  - ENANTHEMA [None]
  - ERYTHEMA MULTIFORME [None]
  - PYREXIA [None]
  - STEVENS-JOHNSON SYNDROME [None]
